FAERS Safety Report 4361900-4 (Version None)
Quarter: 2004Q2

REPORT INFORMATION
  Report Type: 
  Country: None (occurrence: None)
  Receive Date: 20040519
  Receipt Date: 20040519
  Transmission Date: 20050107
  Serious: Yes (Life-Threatening, Hospitalization)
  Sender: FDA-Public Use
  Company Number: None

PATIENT
  Age: 60 Year
  Sex: Female
  Weight: 100.6985 kg

DRUGS (7)
  1. GLUCOPHAGE [Suspect]
     Indication: DIABETES MELLITUS NON-INSULIN-DEPENDENT
     Dosage: 1 GRAM BID
  2. FUROSEMIDE [Concomitant]
  3. METOLAZONE [Concomitant]
  4. GLIPIZIDE [Concomitant]
  5. MECLIZINE [Concomitant]
  6. FLECAINIDE ACETATE [Concomitant]
  7. PRAVASTATIN [Concomitant]

REACTIONS (4)
  - DIALYSIS [None]
  - HYPOTHERMIA [None]
  - LACTIC ACIDOSIS [None]
  - RENAL FAILURE ACUTE [None]
